FAERS Safety Report 10088943 (Version 2)
Quarter: 2014Q2

REPORT INFORMATION
  Report Type: Report from Study
  Country: CH (occurrence: CH)
  Receive Date: 20140421
  Receipt Date: 20140421
  Transmission Date: 20141212
  Serious: Yes (Other)
  Sender: FDA-Public Use
  Company Number: CH-ROCHE-1278529

PATIENT
  Age: 70 Year
  Sex: Male

DRUGS (13)
  1. OBINUTUZUMAB [Suspect]
     Indication: CHRONIC LYMPHOCYTIC LEUKAEMIA
     Route: 065
  2. MABTHERA [Suspect]
     Indication: CHRONIC LYMPHOCYTIC LEUKAEMIA
     Route: 065
     Dates: start: 20020916, end: 20021111
  3. MABTHERA [Suspect]
     Route: 065
     Dates: start: 20021209, end: 20030106
  4. MABTHERA [Suspect]
     Route: 065
     Dates: start: 20040107, end: 20070808
  5. MABTHERA [Suspect]
     Route: 065
     Dates: start: 20071217, end: 20071219
  6. MABTHERA [Suspect]
     Route: 065
     Dates: start: 20100520, end: 20110217
  7. MABTHERA [Suspect]
     Route: 065
     Dates: start: 20130313, end: 20130508
  8. FLUDARABINE [Concomitant]
     Route: 065
     Dates: start: 20020624, end: 20020823
  9. FLUDARABINE [Concomitant]
     Route: 065
     Dates: start: 20020916, end: 20021111
  10. FLUDARABINE [Concomitant]
     Route: 065
     Dates: start: 20071217, end: 20071219
  11. FLUDARABINE [Concomitant]
     Route: 065
     Dates: start: 20040107, end: 20070808
  12. ENDOXAN [Concomitant]
     Route: 065
     Dates: start: 20071217, end: 20071219
  13. RIBOMUSTIN [Concomitant]
     Route: 065
     Dates: start: 20100520, end: 20110217

REACTIONS (4)
  - Pancytopenia [Unknown]
  - Neoplasm progression [Unknown]
  - Thrombocytopenia [Unknown]
  - Lymphocytosis [Unknown]
